FAERS Safety Report 5335384-3 (Version None)
Quarter: 2007Q2

REPORT INFORMATION
  Report Type: 
  Country: None (occurrence: None)
  Receive Date: 20070525
  Receipt Date: 20070515
  Transmission Date: 20071010
  Serious: Yes (Life-Threatening, Hospitalization)
  Sender: FDA-Public Use
  Company Number: JP-PFIZER INC-2007039936

PATIENT

DRUGS (2)
  1. LIPITOR [Suspect]
     Dosage: DAILY DOSE:10MG-FREQ:DAILY
     Route: 048
  2. ANTIBIOTICS [Suspect]

REACTIONS (1)
  - LIVER DISORDER [None]
